FAERS Safety Report 12412011 (Version 1)
Quarter: 2016Q2

REPORT INFORMATION
  Report Type: Report from Study
  Country: US (occurrence: US)
  Receive Date: 20160527
  Receipt Date: 20160527
  Transmission Date: 20160815
  Serious: Yes (Other)
  Sender: FDA-Public Use
  Company Number: US-JNJFOC-20160524263

PATIENT
  Age: 67 Year

DRUGS (9)
  1. AMLODIPINE [Concomitant]
     Active Substance: AMLODIPINE BESYLATE
  2. TAMSULOSIN [Concomitant]
     Active Substance: TAMSULOSIN
  3. CLARITIN [Concomitant]
     Active Substance: LORATADINE
  4. CARVEDILOL. [Concomitant]
     Active Substance: CARVEDILOL
  5. ENALAPRIL [Concomitant]
     Active Substance: ENALAPRIL
  6. IMBRUVICA [Suspect]
     Active Substance: IBRUTINIB
     Indication: MANTLE CELL LYMPHOMA
     Route: 048
     Dates: start: 20140515
  7. PENICILLIN VK [Concomitant]
     Active Substance: PENICILLIN V POTASSIUM
  8. IMBRUVICA [Suspect]
     Active Substance: IBRUTINIB
     Indication: MANTLE CELL LYMPHOMA
     Route: 048
  9. METFORMIN [Concomitant]
     Active Substance: METFORMIN HYDROCHLORIDE

REACTIONS (1)
  - Biopsy [Unknown]
